FAERS Safety Report 11030181 (Version 2)
Quarter: 2015Q3

REPORT INFORMATION
  Report Type: Spontaneous
  Country: US (occurrence: US)
  Receive Date: 20150415
  Receipt Date: 20150917
  Transmission Date: 20151125
  Serious: Yes (Other)
  Sender: FDA-Public Use
  Company Number: US-BAYER-2015-135235

PATIENT
  Age: 28 Year
  Sex: Female
  Weight: 77.98 kg

DRUGS (3)
  1. MIRENA [Suspect]
     Active Substance: LEVONORGESTREL
     Indication: CONTRACEPTION
     Dosage: 20 MCG/24HR, CONT
     Route: 015
     Dates: start: 20090706
  2. DEPO-PROVERA [Concomitant]
     Active Substance: MEDROXYPROGESTERONE ACETATE
  3. PROGESTERONE. [Concomitant]
     Active Substance: PROGESTERONE

REACTIONS (9)
  - Pregnancy with contraceptive device [None]
  - Premature delivery [None]
  - Off label use of device [None]
  - Pain [Not Recovered/Not Resolved]
  - Medical device discomfort [Not Recovered/Not Resolved]
  - Embedded device [Not Recovered/Not Resolved]
  - Device use error [None]
  - Injury [Not Recovered/Not Resolved]
  - Drug ineffective [None]

NARRATIVE: CASE EVENT DATE: 2011
